FAERS Safety Report 6746779-5 (Version None)
Quarter: 2010Q2

REPORT INFORMATION
  Report Type: 
  Country: None (occurrence: None)
  Receive Date: 20100528
  Receipt Date: 20091009
  Transmission Date: 20101027
  Serious: No
  Sender: FDA-Public Use
  Company Number: A0811077A

PATIENT
  Age: 11 Year
  Sex: Female

DRUGS (3)
  1. ALBUTEROL [Suspect]
     Route: 065
  2. SEREVENT [Suspect]
     Route: 055
     Dates: start: 20091002
  3. ALBUTEROL [Concomitant]

REACTIONS (1)
  - DRUG INEFFECTIVE [None]
